FAERS Safety Report 8290480-6 (Version None)
Quarter: 2012Q2

REPORT INFORMATION
  Report Type: 
  Country: None (occurrence: None)
  Receive Date: 20120417
  Receipt Date: 20110907
  Transmission Date: 20120825
  Serious: Yes (Hospitalization)
  Sender: FDA-Public Use
  Company Number: US-ASTRAZENECA-2011SE54836

PATIENT
  Age: 18 Year
  Sex: Female

DRUGS (13)
  1. TACROLIMUS [Interacting]
     Indication: IMMUNOSUPPRESSION
  2. OMEPRAZOLE [Interacting]
     Route: 048
  3. LANSOPRAZOLE [Concomitant]
     Indication: ANTACID THERAPY
  4. CEFDINIR [Concomitant]
  5. ESOMEPRAZOLE MAGNESIUM [Suspect]
     Route: 048
  6. OMEPRAZOLE [Interacting]
     Route: 048
  7. MYCOPHENOLATE MOFETIL [Concomitant]
     Indication: IMMUNOSUPPRESSION
  8. SULFAMETHOXAZOLE AND TRIMETHOPRIM [Concomitant]
  9. VALGANCICLOVIR [Concomitant]
  10. CARVEDILOL [Concomitant]
  11. PREDNISONE TAB [Concomitant]
  12. TACROLIMUS [Interacting]
  13. TACROLIMUS [Interacting]

REACTIONS (6)
  - DRUG INTERACTION [None]
  - FATIGUE [None]
  - NAUSEA [None]
  - BLOOD CREATININE INCREASED [None]
  - VOMITING [None]
  - CHRONIC SINUSITIS [None]
